FAERS Safety Report 7027719-0 (Version None)
Quarter: 2010Q4

REPORT INFORMATION
  Report Type: 
  Country: None (occurrence: None)
  Receive Date: 20101004
  Receipt Date: 20100921
  Transmission Date: 20110411
  Serious: Yes (Hospitalization)
  Sender: FDA-Public Use
  Company Number: GR-GENENTECH-307151

PATIENT
  Age: 80 Year
  Sex: Female

DRUGS (3)
  1. MABTHERA [Suspect]
     Indication: OSTEOCHONDROSIS
     Dosage: 550 MG, UNK
     Route: 042
  2. MABTHERA [Suspect]
     Dosage: 550 MG, UNK
     Route: 042
     Dates: start: 20100901
  3. PREMEDICATION [Concomitant]
     Indication: PREMEDICATION
     Dosage: DRUG NAME: PREMEDICATION NOS

REACTIONS (2)
  - ERYTHEMA [None]
  - PYREXIA [None]
